FAERS Safety Report 13713531 (Version 6)
Quarter: 2019Q2

REPORT INFORMATION
  Report Type: Spontaneous
  Country: JP (occurrence: JP)
  Receive Date: 20170704
  Receipt Date: 20190405
  Transmission Date: 20190711
  Serious: Yes (Life-Threatening, Other)
  Sender: FDA-Public Use
  Company Number: JP-CONCORDIA PHARMACEUTICALS INC.-E2B_00008215

PATIENT
  Age: 79 Year
  Sex: Male
  Weight: 56 kg

DRUGS (5)
  1. RITUXIMAB. [Suspect]
     Active Substance: RITUXIMAB
     Indication: DIFFUSE LARGE B-CELL LYMPHOMA
  2. PREDNISOLONE. [Suspect]
     Active Substance: PREDNISOLONE
     Indication: DIFFUSE LARGE B-CELL LYMPHOMA
  3. CYCLOPHOSPHAMIDE. [Suspect]
     Active Substance: CYCLOPHOSPHAMIDE
     Indication: DIFFUSE LARGE B-CELL LYMPHOMA
  4. VINCRISTINE [Suspect]
     Active Substance: VINCRISTINE
     Indication: DIFFUSE LARGE B-CELL LYMPHOMA
  5. PIRARUBICIN [Suspect]
     Active Substance: PIRARUBICIN
     Indication: DIFFUSE LARGE B-CELL LYMPHOMA

REACTIONS (6)
  - Sepsis [Recovered/Resolved]
  - Lung abscess [Recovered/Resolved]
  - Empyema [Recovering/Resolving]
  - Tuberculosis [Recovering/Resolving]
  - Streptococcal infection [Recovered/Resolved]
  - Liver abscess [Recovered/Resolved]
